FAERS Safety Report 15585755 (Version 1)
Quarter: 2018Q4

REPORT INFORMATION
  Report Type: Spontaneous
  Country: JP (occurrence: JP)
  Receive Date: 20181105
  Receipt Date: 20181105
  Transmission Date: 20190205
  Serious: Yes (Other)
  Sender: FDA-Public Use
  Company Number: JP-BAUSCH-BL-2018-030137

PATIENT
  Age: 63 Year
  Sex: Male

DRUGS (4)
  1. FLUOROURACIL. [Suspect]
     Active Substance: FLUOROURACIL
     Indication: LARYNGEAL CANCER
     Route: 065
     Dates: start: 201704
  2. CISPLATIN. [Suspect]
     Active Substance: CISPLATIN
     Indication: LARYNGEAL CANCER
     Route: 065
     Dates: start: 201704
  3. TAXOTERE [Suspect]
     Active Substance: DOCETAXEL
     Indication: LARYNGEAL CANCER
     Route: 041
     Dates: start: 201704
  4. CISPLATIN. [Suspect]
     Active Substance: CISPLATIN
     Route: 065
     Dates: start: 201706

REACTIONS (1)
  - Infective spondylitis [Unknown]

NARRATIVE: CASE EVENT DATE: 201708
